FAERS Safety Report 5524212-9 (Version None)
Quarter: 2007Q4

REPORT INFORMATION
  Report Type: 
  Country: None (occurrence: None)
  Receive Date: 20071121
  Receipt Date: 20071113
  Transmission Date: 20080405
  Serious: Yes (Other)
  Sender: FDA-Public Use
  Company Number: FR-PFIZER INC-2007073467

PATIENT
  Sex: Male
  Weight: 59 kg

DRUGS (2)
  1. XALATAN [Suspect]
     Route: 047
  2. HOMEOPATHIC PREPARATION [Concomitant]

REACTIONS (4)
  - EYE DISCHARGE [None]
  - EYE INFECTION [None]
  - EYE IRRITATION [None]
  - EYE PAIN [None]
